FAERS Safety Report 10394315 (Version 1)
Quarter: 2014Q3

REPORT INFORMATION
  Report Type: Spontaneous
  Country: BR (occurrence: BR)
  Receive Date: 20140819
  Receipt Date: 20140819
  Transmission Date: 20150326
  Serious: Yes (Other)
  Sender: FDA-Public Use
  Company Number: PHHY2014BR103039

PATIENT
  Age: 23 Year
  Sex: Female

DRUGS (2)
  1. PULMOZYME [Suspect]
     Active Substance: DORNASE ALFA
     Dosage: UNK UKN, UNK
  2. ZOTEON [Suspect]
     Active Substance: TOBRAMYCIN
     Dosage: UNK UKN, UNK
     Dates: start: 2007

REACTIONS (2)
  - Haemorrhage [Recovered/Resolved]
  - Haemoptysis [Unknown]
